FAERS Safety Report 6764373-7 (Version None)
Quarter: 2010Q2

REPORT INFORMATION
  Report Type: 
  Country: None (occurrence: None)
  Receive Date: 20100609
  Receipt Date: 20100505
  Transmission Date: 20101027
  Serious: No
  Sender: FDA-Public Use
  Company Number: 2010010775

PATIENT
  Age: 4 Year
  Weight: 17.2367 kg

DRUGS (2)
  1. CHILDREN'S ZYRTEC ALLERGY [Suspect]
     Indication: HYPERSENSITIVITY
     Dosage: 1 SPOONFUL EVERY 24 HOURS, ORAL
     Route: 048
     Dates: start: 20100426, end: 20100429
  2. MOMETASONE FUROATE [Concomitant]

REACTIONS (2)
  - PRODUCT QUALITY ISSUE [None]
  - SOMNOLENCE [None]
